APPROVED DRUG PRODUCT: BUSPIRONE HYDROCHLORIDE
Active Ingredient: BUSPIRONE HYDROCHLORIDE
Strength: 5MG **Federal Register determination that product was not discontinued or withdrawn for safety or effectiveness reasons**
Dosage Form/Route: TABLET;ORAL
Application: A075385 | Product #001
Applicant: IVAX PHARMACEUTICALS INC SUB TEVA PHARMACEUTICALS USA
Approved: Mar 1, 2002 | RLD: No | RS: No | Type: DISCN